FAERS Safety Report 5948316-1 (Version None)
Quarter: 2008Q4

REPORT INFORMATION
  Report Type: 
  Country: None (occurrence: None)
  Receive Date: 20081110
  Receipt Date: 20081110
  Transmission Date: 20090506
  Serious: Yes (Life-Threatening, Hospitalization, Disabling)
  Sender: FDA-Public Use
  Company Number: None

PATIENT
  Age: 46 Year
  Sex: Female
  Weight: 80.7403 kg

DRUGS (5)
  1. PREDNISONE TAB [Suspect]
     Indication: ANAPHYLACTIC REACTION
     Dosage: 20 MG BID PO  2 DOSES
     Route: 048
     Dates: start: 20081107, end: 20081108
  2. GASTROCROM [Concomitant]
  3. LEVOXYL [Concomitant]
  4. DYE FREE BENADRYL [Concomitant]
  5. ACIPHEX [Concomitant]

REACTIONS (1)
  - ANAPHYLACTIC REACTION [None]
